FAERS Safety Report 4781704-8 (Version None)
Quarter: 2005Q3

REPORT INFORMATION
  Report Type: 
  Country: None (occurrence: None)
  Receive Date: 20050927
  Receipt Date: 20050913
  Transmission Date: 20060218
  Serious: Yes (Hospitalization)
  Sender: FDA-Public Use
  Company Number: 2005-01981

PATIENT
  Age: 65 Year
  Sex: Male

DRUGS (3)
  1. VELCADE [Suspect]
     Indication: MULTIPLE MYELOMA
     Dosage: 1.30 MG/M2, IV BOLUS; INTRAVENOUS; INTRAVENOUS
     Route: 040
     Dates: start: 20050412, end: 20050506
  2. VELCADE [Suspect]
     Indication: MULTIPLE MYELOMA
     Dosage: 1.30 MG/M2, IV BOLUS; INTRAVENOUS; INTRAVENOUS
     Route: 040
     Dates: start: 20050524, end: 20050528
  3. VELCADE [Suspect]
     Indication: MULTIPLE MYELOMA
     Dosage: 1.30 MG/M2, IV BOLUS; INTRAVENOUS; INTRAVENOUS
     Route: 040
     Dates: start: 20050614, end: 20050614

REACTIONS (6)
  - DRUG ERUPTION [None]
  - ORAL SOFT TISSUE DISORDER [None]
  - PHARYNGOLARYNGEAL PAIN [None]
  - RASH [None]
  - SKIN TEST POSITIVE [None]
  - URTICARIA [None]
